FAERS Safety Report 11144892 (Version 2)
Quarter: 2015Q2

REPORT INFORMATION
  Report Type: Spontaneous
  Country: FR (occurrence: FR)
  Receive Date: 20150528
  Receipt Date: 20150617
  Transmission Date: 20150821
  Serious: Yes (Other)
  Sender: FDA-Public Use
  Company Number: FR-PFIZER INC-2015174670

PATIENT
  Age: 60 Year
  Sex: Female
  Weight: 65 kg

DRUGS (2)
  1. XALATAN [Suspect]
     Active Substance: LATANOPROST
     Indication: GLAUCOMA
  2. XALATAN [Suspect]
     Active Substance: LATANOPROST
     Indication: INTRAOCULAR PRESSURE INCREASED
     Dosage: 1 GTT, 1X/DAY,  IN EACH EYE
     Route: 047
     Dates: start: 20150502, end: 20150516

REACTIONS (4)
  - Cough [Recovering/Resolving]
  - Sense of oppression [Recovering/Resolving]
  - Nasopharyngitis [Recovering/Resolving]
  - Bronchospasm [Recovered/Resolved]

NARRATIVE: CASE EVENT DATE: 201505
